FAERS Safety Report 6610878-9 (Version None)
Quarter: 2010Q1

REPORT INFORMATION
  Report Type: 
  Country: None (occurrence: None)
  Receive Date: 20100219
  Receipt Date: 20100204
  Transmission Date: 20100710
  Serious: Yes (Death, Other)
  Sender: FDA-Public Use
  Company Number: AUR-APL-2010-00368

PATIENT
  Age: 59 Year
  Sex: Male

DRUGS (1)
  1. CEFTRIAXONE [Suspect]
     Dosage: ONCE, INTRADERMAL 1 DOSE
     Route: 023

REACTIONS (2)
  - ANAPHYLACTIC SHOCK [None]
  - EMPHYSEMA [None]
